FAERS Safety Report 7046968-9 (Version None)
Quarter: 2010Q4

REPORT INFORMATION
  Report Type: 
  Country: None (occurrence: None)
  Receive Date: 20101015
  Receipt Date: 20101004
  Transmission Date: 20110411
  Serious: No
  Sender: FDA-Public Use
  Company Number: US-JNJFOC-20101001980

PATIENT
  Sex: Female

DRUGS (6)
  1. SANDOZ FENTANYL TRANSDERMAL SYSTEM [Suspect]
     Indication: ARTHRALGIA
     Dosage: NDC-0781-7240-55
     Route: 062
  2. MOTRIN [Concomitant]
     Indication: BREAKTHROUGH PAIN
     Route: 048
  3. CYMBALTA [Concomitant]
     Indication: DEPRESSION
     Route: 048
  4. ATIVAN [Concomitant]
     Indication: PANIC ATTACK
     Route: 048
  5. AMBIEN [Concomitant]
     Indication: SLEEP DISORDER
     Route: 048
  6. TUMS [Concomitant]
     Indication: ABDOMINAL DISCOMFORT
     Route: 048

REACTIONS (3)
  - DRUG EFFECT DECREASED [None]
  - MEDICATION ERROR [None]
  - WRONG TECHNIQUE IN DRUG USAGE PROCESS [None]
